FAERS Safety Report 7370148-0 (Version None)
Quarter: 2011Q1

REPORT INFORMATION
  Report Type: 
  Country: None (occurrence: None)
  Receive Date: 20110323
  Receipt Date: 20100331
  Transmission Date: 20110831
  Serious: No
  Sender: FDA-Public Use
  Company Number: US-ASTRAZENECA-2010SE14175

PATIENT
  Sex: Male

DRUGS (2)
  1. EXFORGE [Suspect]
  2. LISINOPRIL [Suspect]
     Route: 048

REACTIONS (3)
  - ARTHROPATHY [None]
  - MUSCLE SPASMS [None]
  - BLOOD PRESSURE INADEQUATELY CONTROLLED [None]
